FAERS Safety Report 10723342 (Version 1)
Quarter: 2015Q1

REPORT INFORMATION
  Report Type: Spontaneous
  Country: US (occurrence: US)
  Receive Date: 20150120
  Receipt Date: 20150120
  Transmission Date: 20150721
  Serious: Yes (Hospitalization, Other)
  Sender: FDA-Public Use
  Company Number: US-ELI_LILLY_AND_COMPANY-US201501002656

PATIENT
  Sex: Male

DRUGS (9)
  1. CALCIUM [Concomitant]
     Active Substance: CALCIUM
  2. VITAMIN B [Concomitant]
     Active Substance: VITAMIN B
  3. INSULIN HUMAN [Suspect]
     Active Substance: INSULIN HUMAN
     Indication: TYPE 1 DIABETES MELLITUS
     Route: 065
  4. INSULIN LISPRO [Suspect]
     Active Substance: INSULIN LISPRO
     Indication: TYPE 1 DIABETES MELLITUS
     Dosage: UNK
     Route: 065
  5. INDAPAMIDE. [Concomitant]
     Active Substance: INDAPAMIDE
     Dosage: 1.25 MG, UNK
  6. HUMULIN N [Suspect]
     Active Substance: INSULIN HUMAN
     Indication: TYPE 1 DIABETES MELLITUS
     Route: 065
  7. INSULIN LISPRO [Suspect]
     Active Substance: INSULIN LISPRO
     Dosage: UNK
     Route: 058
     Dates: start: 2008
  8. ILETIN I [Suspect]
     Active Substance: INSULIN PORK\INSULIN PURIFIED PORK
     Indication: TYPE 1 DIABETES MELLITUS
     Route: 065
  9. CAPTOPRIL. [Concomitant]
     Active Substance: CAPTOPRIL
     Dosage: 25 MG, BID

REACTIONS (9)
  - Berylliosis [Unknown]
  - Hearing impaired [Unknown]
  - Blindness [Unknown]
  - Exposure to radiation [Unknown]
  - Colon cancer [Unknown]
  - Drug effect delayed [Unknown]
  - Blood glucose increased [Unknown]
  - Malignant neoplasm of eye [Unknown]
  - Diabetic retinopathy [Unknown]
